APPROVED DRUG PRODUCT: TRIAMCINOLONE ACETONIDE
Active Ingredient: TRIAMCINOLONE ACETONIDE
Strength: 0.1%
Dosage Form/Route: PASTE;DENTAL
Application: A070730 | Product #001 | TE Code: AT
Applicant: SUN PHARMA CANADA INC
Approved: Oct 1, 1986 | RLD: No | RS: Yes | Type: RX